FAERS Safety Report 15636563 (Version 6)
Quarter: 2019Q3

REPORT INFORMATION
  Report Type: Report from Study
  Country: DE (occurrence: DE)
  Receive Date: 20181120
  Receipt Date: 20190813
  Transmission Date: 20191004
  Serious: Yes (Hospitalization)
  Sender: FDA-Public Use
  Company Number: DE-ROCHE-2212951

PATIENT
  Age: 70 Year
  Sex: Male
  Weight: 80 kg

DRUGS (52)
  1. DEXAMETHASON [DEXAMETHASONE] [Concomitant]
     Active Substance: DEXAMETHASONE
     Dosage: EYE DROP
     Route: 001
     Dates: start: 20170929
  2. XARELTO [Concomitant]
     Active Substance: RIVAROXABAN
     Indication: PULMONARY EMBOLISM
     Route: 048
     Dates: start: 20180914
  3. DEXAMETHASON [DEXAMETHASONE] [Concomitant]
     Active Substance: DEXAMETHASONE
     Indication: HEADACHE
     Route: 048
     Dates: start: 20170901, end: 20170903
  4. DEXAMETHASON [DEXAMETHASONE] [Concomitant]
     Active Substance: DEXAMETHASONE
     Route: 048
     Dates: start: 20180124, end: 20180220
  5. DEXAMETHASON [DEXAMETHASONE] [Concomitant]
     Active Substance: DEXAMETHASONE
     Route: 048
     Dates: start: 20180409, end: 20180515
  6. DEXAMETHASON [DEXAMETHASONE] [Concomitant]
     Active Substance: DEXAMETHASONE
     Route: 048
     Dates: start: 20180612, end: 20180709
  7. DEXAMETHASON [DEXAMETHASONE] [Concomitant]
     Active Substance: DEXAMETHASONE
     Route: 048
     Dates: start: 20180807, end: 20180820
  8. COBIMETINIB. [Suspect]
     Active Substance: COBIMETINIB
     Route: 048
     Dates: start: 20170904, end: 20180327
  9. VEMURAFENIB. [Suspect]
     Active Substance: VEMURAFENIB
     Route: 048
     Dates: start: 20180423, end: 20180514
  10. VOMEX A [Concomitant]
     Active Substance: DIMENHYDRINATE
     Indication: PROPHYLAXIS OF NAUSEA AND VOMITING
     Route: 048
     Dates: start: 20180620
  11. LEVETIRACETAM. [Concomitant]
     Active Substance: LEVETIRACETAM
     Indication: METASTASES TO CENTRAL NERVOUS SYSTEM
     Route: 048
     Dates: start: 20140501
  12. PANTOPRAZOL [PANTOPRAZOLE] [Concomitant]
     Active Substance: PANTOPRAZOLE
     Indication: PROPHYLAXIS
     Route: 048
     Dates: start: 20170201
  13. CEFUROXIM [CEFUROXIME] [Concomitant]
     Active Substance: CEFUROXIME
     Route: 048
     Dates: start: 20171018, end: 20171024
  14. CLINDAMYCIN. [Concomitant]
     Active Substance: CLINDAMYCIN
     Indication: SKIN INFECTION
     Route: 048
     Dates: start: 20171024, end: 20171102
  15. COBIMETINIB. [Suspect]
     Active Substance: COBIMETINIB
     Route: 048
     Dates: start: 20170823, end: 20170828
  16. SIMVASTATIN. [Concomitant]
     Active Substance: SIMVASTATIN
     Indication: VASCULAR GRAFT
     Route: 048
     Dates: start: 20150501
  17. FENTANYL. [Concomitant]
     Active Substance: FENTANYL
     Indication: PERIPHERAL SENSORIMOTOR NEUROPATHY
     Route: 003
     Dates: start: 20180602
  18. SEVREDOL [Concomitant]
     Active Substance: MORPHINE
     Indication: PERIPHERAL SENSORIMOTOR NEUROPATHY
     Dosage: AS REQUIREDSS
     Route: 048
     Dates: start: 20180605
  19. ASPIRIN. [Concomitant]
     Active Substance: ASPIRIN
     Indication: VASCULAR GRAFT
     Route: 048
     Dates: start: 20140501
  20. DEXAMETHASON [DEXAMETHASONE] [Concomitant]
     Active Substance: DEXAMETHASONE
     Route: 048
     Dates: start: 20180724, end: 20180806
  21. VEMURAFENIB. [Suspect]
     Active Substance: VEMURAFENIB
     Route: 048
     Dates: start: 20170831, end: 20170903
  22. VEMURAFENIB. [Suspect]
     Active Substance: VEMURAFENIB
     Route: 048
     Dates: start: 20170823, end: 20170828
  23. LEVEMIR [Concomitant]
     Active Substance: INSULIN DETEMIR
     Indication: HYPERGLYCAEMIA
     Route: 058
     Dates: start: 20171010
  24. PREGABALIN. [Concomitant]
     Active Substance: PREGABALIN
     Indication: PERIPHERAL SENSORIMOTOR NEUROPATHY
     Route: 048
     Dates: start: 20180615
  25. DEXAMETHASON [DEXAMETHASONE] [Concomitant]
     Active Substance: DEXAMETHASONE
     Indication: VOMITING
     Route: 048
     Dates: start: 20170904, end: 20170921
  26. DEXAMETHASON [DEXAMETHASONE] [Concomitant]
     Active Substance: DEXAMETHASONE
     Route: 048
     Dates: start: 20180607, end: 20180611
  27. COBIMETINIB. [Suspect]
     Active Substance: COBIMETINIB
     Route: 048
     Dates: start: 20170831, end: 20170903
  28. VEMURAFENIB. [Suspect]
     Active Substance: VEMURAFENIB
     Route: 048
     Dates: start: 20170826, end: 20170828
  29. METAMIZOL [Concomitant]
     Active Substance: METAMIZOLE SODIUM
     Indication: PERIPHERAL SENSORIMOTOR NEUROPATHY
     Route: 048
     Dates: start: 20180605
  30. COBIMETINIB. [Suspect]
     Active Substance: COBIMETINIB
     Indication: MALIGNANT MELANOMA
     Route: 048
     Dates: start: 20180423, end: 20180514
  31. VEMURAFENIB. [Suspect]
     Active Substance: VEMURAFENIB
     Route: 048
     Dates: start: 20170904, end: 20180327
  32. MONO EMBOLEX [Concomitant]
     Active Substance: CERTOPARIN SODIUM
     Indication: PROPHYLAXIS
  33. NOVAMINSULFON [Concomitant]
     Active Substance: METAMIZOLE
     Route: 048
     Dates: start: 20180524
  34. MIRTAZAPIN [Concomitant]
     Active Substance: MIRTAZAPINE
     Indication: PERIPHERAL SENSORIMOTOR NEUROPATHY
     Route: 048
     Dates: start: 20180620
  35. DEXAMETHASON [DEXAMETHASONE] [Concomitant]
     Active Substance: DEXAMETHASONE
     Indication: BRAIN OEDEMA
     Route: 048
     Dates: start: 20170828, end: 20170831
  36. DEXAMETHASON [DEXAMETHASONE] [Concomitant]
     Active Substance: DEXAMETHASONE
     Route: 048
     Dates: start: 20180710, end: 20180723
  37. VEMURAFENIB. [Suspect]
     Active Substance: VEMURAFENIB
     Indication: MALIGNANT MELANOMA
     Route: 048
     Dates: start: 20170907, end: 20180618
  38. VEMURAFENIB. [Suspect]
     Active Substance: VEMURAFENIB
     Route: 048
     Dates: start: 20170823, end: 20170823
  39. VEMURAFENIB. [Suspect]
     Active Substance: VEMURAFENIB
     Route: 048
     Dates: start: 20170907, end: 20180618
  40. OLANZAPIN [Concomitant]
     Active Substance: OLANZAPINE
     Indication: PERIPHERAL SENSORIMOTOR NEUROPATHY
     Route: 048
     Dates: start: 20180605
  41. DEXAMETHASON [DEXAMETHASONE] [Concomitant]
     Active Substance: DEXAMETHASONE
     Route: 048
     Dates: start: 20180516, end: 20180603
  42. LANTUS [Concomitant]
     Active Substance: INSULIN GLARGINE
     Indication: HYPERGLYCAEMIA
     Route: 058
     Dates: start: 20170929, end: 20171010
  43. CEFTRIAXON [Concomitant]
     Active Substance: CEFTRIAXONE
     Indication: PYREXIA
     Route: 065
     Dates: start: 20181031, end: 20181105
  44. RAMIPRIL. [Concomitant]
     Active Substance: RAMIPRIL
     Indication: VASCULAR GRAFT
     Route: 048
     Dates: start: 20140501
  45. MONO EMBOLEX [Concomitant]
     Active Substance: CERTOPARIN SODIUM
     Indication: EMBOLISM
     Route: 058
     Dates: start: 20170131
  46. HUMALOG [Concomitant]
     Active Substance: INSULIN LISPRO
     Indication: HYPERGLYCAEMIA
     Route: 058
     Dates: start: 20170929
  47. DEXAMETHASON [DEXAMETHASONE] [Concomitant]
     Active Substance: DEXAMETHASONE
     Indication: NAUSEA
     Route: 048
     Dates: start: 20170922, end: 20180123
  48. DEXAMETHASON [DEXAMETHASONE] [Concomitant]
     Active Substance: DEXAMETHASONE
     Route: 048
     Dates: start: 20180604, end: 20180606
  49. PREGABALIN. [Concomitant]
     Active Substance: PREGABALIN
     Route: 048
     Dates: start: 20180615
  50. FOLVERLAN [Concomitant]
     Active Substance: FOLIC ACID
     Indication: PROPHYLAXIS
     Route: 048
     Dates: start: 20181022
  51. NOVAMINSULFON [Concomitant]
     Active Substance: METAMIZOLE
     Indication: PAIN PROPHYLAXIS
     Route: 048
     Dates: start: 20170810, end: 20170920
  52. DEXAMETHASON [DEXAMETHASONE] [Concomitant]
     Active Substance: DEXAMETHASONE
     Indication: VISION BLURRED
     Dosage: EYE OINTMENT
     Route: 001
     Dates: start: 20170929

REACTIONS (2)
  - Gastroenteritis viral [Recovered/Resolved]
  - Pyrexia [Unknown]

NARRATIVE: CASE EVENT DATE: 20181026
